FAERS Safety Report 8333729-3 (Version None)
Quarter: 2012Q2

REPORT INFORMATION
  Report Type: 
  Country: None (occurrence: None)
  Receive Date: 20120503
  Receipt Date: 20120503
  Transmission Date: 20120825
  Serious: No
  Sender: FDA-Public Use
  Company Number: None

PATIENT
  Age: 50 Year
  Sex: Female
  Weight: 47.627 kg

DRUGS (1)
  1. COPAXONE [Suspect]
     Indication: MULTIPLE SCLEROSIS
     Dosage: |DOSAGETEXT: 20.0 MG||STRENGTH: 20MG||FREQ: DAILY||ROUTE: SUBCUTANEOUS|
     Route: 058

REACTIONS (1)
  - INJECTION SITE PAIN [None]
